FAERS Safety Report 9393773 (Version 2)
Quarter: 2013Q3

REPORT INFORMATION
  Report Type: Spontaneous
  Country: US (occurrence: US)
  Receive Date: 20130710
  Receipt Date: 20130719
  Transmission Date: 20140515
  Serious: Yes (Other)
  Sender: FDA-Public Use
  Company Number: US-PFIZER INC-2013202666

PATIENT
  Age: 64 Year
  Sex: Male
  Weight: 117.91 kg

DRUGS (4)
  1. LYRICA [Suspect]
     Indication: PAIN
     Dosage: 150 MG, 3X/DAY
     Route: 048
  2. ADDERALL [Concomitant]
     Indication: FIBROMYALGIA
     Dosage: UNK
  3. ADDERALL [Concomitant]
     Indication: CHRONIC FATIGUE SYNDROME
  4. LISINOPRIL [Concomitant]
     Indication: HYPERTENSION
     Dosage: UNK

REACTIONS (7)
  - Intentional drug misuse [Unknown]
  - Arthropathy [Unknown]
  - Visual impairment [Unknown]
  - Body height decreased [Unknown]
  - Dizziness [Unknown]
  - Pain [Unknown]
  - Arthralgia [Unknown]
